FAERS Safety Report 4882839-1 (Version None)
Quarter: 2005Q4

REPORT INFORMATION
  Report Type: 
  Country: None (occurrence: None)
  Receive Date: 20051201
  Receipt Date: 20050926
  Transmission Date: 20060501
  Serious: No
  Sender: FDA-Public Use
  Company Number: 2005PV002554

PATIENT
  Age: 72 Year
  Sex: Female
  Weight: 149.687 kg

DRUGS (7)
  1. BYETTA [Suspect]
     Indication: DIABETES MELLITUS NON-INSULIN-DEPENDENT
     Dosage: 5 MCG;BID;SC
     Route: 058
     Dates: start: 20050921
  2. GLYBURIDE [Concomitant]
  3. POTASSIUM [Concomitant]
  4. DILTIAZEM HCL [Concomitant]
  5. VASOTEC [Concomitant]
  6. LASIX [Concomitant]
  7. METAMUCIL [Concomitant]

REACTIONS (2)
  - CONSTIPATION [None]
  - SOMNOLENCE [None]
